FAERS Safety Report 8566229-6 (Version None)
Quarter: 2012Q3

REPORT INFORMATION
  Report Type: 
  Country: None (occurrence: None)
  Receive Date: 20120803
  Receipt Date: 20111014
  Transmission Date: 20120928
  Serious: No
  Sender: FDA-Public Use
  Company Number: US-ABBOTT-11P-163-0851524-00

PATIENT
  Sex: Female
  Weight: 61.29 kg

DRUGS (11)
  1. METOPROLOL TARTRATE [Concomitant]
     Indication: PRODUCT USED FOR UNKNOWN INDICATION
  2. CRESTOR [Concomitant]
     Indication: PRODUCT USED FOR UNKNOWN INDICATION
  3. SINGULAIR [Concomitant]
     Indication: PRODUCT USED FOR UNKNOWN INDICATION
     Dosage: DAILY
  4. NIASPAN [Suspect]
     Indication: HIGH DENSITY LIPOPROTEIN INCREASED
  5. PLAVIX [Concomitant]
     Indication: PRODUCT USED FOR UNKNOWN INDICATION
  6. NIASPAN [Suspect]
     Indication: CATHETERISATION CARDIAC
     Dosage: 1 IN AM AND 1 AT PM, DAILY
     Dates: start: 20110901, end: 20110906
  7. RANEXA [Concomitant]
     Indication: PRODUCT USED FOR UNKNOWN INDICATION
  8. AZOR [Concomitant]
     Indication: PRODUCT USED FOR UNKNOWN INDICATION
     Dosage: 5/20, DAILY
  9. LASIX [Concomitant]
     Indication: PRODUCT USED FOR UNKNOWN INDICATION
  10. NIASPAN [Suspect]
     Indication: STENT PLACEMENT
  11. RANEXA [Suspect]
     Indication: ANGINA PECTORIS
     Dosage: NOT REPORTED
     Dates: start: 20110901

REACTIONS (7)
  - NAUSEA [None]
  - FLUSHING [None]
  - TREMOR [None]
  - MYALGIA [None]
  - CONSTIPATION [None]
  - HEADACHE [None]
  - ASTHENIA [None]
